FAERS Safety Report 9277316 (Version 1)
Quarter: 2013Q2

REPORT INFORMATION
  Report Type: Spontaneous
  Country: US (occurrence: None)
  Receive Date: 20130503
  Receipt Date: 20130503
  Transmission Date: 20140414
  Serious: No
  Sender: FDA-Public Use
  Company Number: None

PATIENT
  Age: 30 Year
  Sex: Female
  Weight: 67.13 kg

DRUGS (1)
  1. AMPHETAMINE SALTS, ER, 25 MG, EXTENDED RELEASE, ACTAVIS ELIZABETH, LLC [Suspect]
     Indication: ATTENTION DEFICIT/HYPERACTIVITY DISORDER
     Route: 048
     Dates: start: 20130316, end: 20130501

REACTIONS (10)
  - Fatigue [None]
  - Headache [None]
  - Vision blurred [None]
  - Memory impairment [None]
  - Photosensitivity reaction [None]
  - Thinking abnormal [None]
  - Mood altered [None]
  - Anxiety [None]
  - Agitation [None]
  - Depression [None]
